FAERS Safety Report 9438903 (Version 6)
Quarter: 2014Q2

REPORT INFORMATION
  Report Type: Spontaneous
  Country: JP (occurrence: JP)
  Receive Date: 20130802
  Receipt Date: 20140602
  Transmission Date: 20141212
  Serious: Yes (Disabling)
  Sender: FDA-Public Use
  Company Number: JP-BRISTOL-MYERS SQUIBB COMPANY-19156181

PATIENT
  Age: 53 Year
  Sex: Female
  Weight: 59.6 kg

DRUGS (16)
  1. ORENCIA [Suspect]
     Indication: RHEUMATOID ARTHRITIS
     Route: 048
     Dates: start: 20120402, end: 20120601
  2. METHOTREXATE [Suspect]
  3. SIMPONI [Suspect]
     Indication: RHEUMATOID ARTHRITIS
     Dosage: AND(14OCT2011-11NOV2011)
     Dates: start: 20081114, end: 20110912
  4. ACTEMRA [Suspect]
     Indication: RHEUMATOID ARTHRITIS
     Dates: start: 20111209, end: 20120302
  5. TACROLIMUS [Concomitant]
     Indication: RHEUMATOID ARTHRITIS
     Dates: start: 20130308
  6. PREDNISOLONE [Concomitant]
     Indication: RHEUMATOID ARTHRITIS
     Dates: start: 20040115
  7. LOXOPROFEN [Concomitant]
     Dates: start: 20070502
  8. FOLIAMIN [Concomitant]
     Dates: start: 20070613
  9. LANSOPRAZOLE [Concomitant]
     Indication: PROPHYLAXIS
     Dates: start: 20080606
  10. LIPITOR [Concomitant]
     Dates: start: 20120203
  11. FOSAMAC [Concomitant]
     Dates: start: 20120402
  12. MIRAPEX [Concomitant]
     Dosage: PRODUCT FORMULATION:MIRAPEX-LA TABS
     Dates: start: 20120709
  13. GASMOTIN [Concomitant]
     Dates: start: 20120806
  14. MENESIT [Concomitant]
     Dosage: TABS
     Dates: start: 20120903
  15. NAIXAN [Concomitant]
     Dates: start: 20120204
  16. PROTECADIN [Concomitant]
     Indication: PROPHYLAXIS
     Route: 048
     Dates: start: 20120308

REACTIONS (1)
  - Parkinson^s disease [Not Recovered/Not Resolved]
